FAERS Safety Report 13790496 (Version 1)
Quarter: 2017Q3

REPORT INFORMATION
  Report Type: Spontaneous
  Country: PL (occurrence: PL)
  Receive Date: 20170725
  Receipt Date: 20170725
  Transmission Date: 20171127
  Serious: Yes (Hospitalization)
  Sender: FDA-Public Use
  Company Number: PL-GLAXOSMITHKLINE-PL2017GSK114085

PATIENT
  Age: 46 Year
  Sex: Female

DRUGS (3)
  1. GABAPENTIN. [Concomitant]
     Active Substance: GABAPENTIN
  2. MIANSERIN [Concomitant]
     Active Substance: MIANSERIN
  3. ROPINIROLE. [Suspect]
     Active Substance: ROPINIROLE
     Indication: RESTLESS LEGS SYNDROME

REACTIONS (3)
  - Polydipsia [Recovered/Resolved]
  - Dry mouth [Recovered/Resolved]
  - Fluid overload [Recovered/Resolved]
